FAERS Safety Report 17060061 (Version 1)
Quarter: 2019Q4

REPORT INFORMATION
  Report Type: Spontaneous
  Country: US (occurrence: US)
  Receive Date: 20191121
  Receipt Date: 20191121
  Transmission Date: 20200122
  Serious: No
  Sender: FDA-Public Use
  Company Number: US-NOVOPROD-687903

PATIENT
  Age: 59 Year
  Sex: Female

DRUGS (2)
  1. LANTUS [Concomitant]
     Active Substance: INSULIN GLARGINE
     Indication: PRODUCT USED FOR UNKNOWN INDICATION
     Dosage: UNK
     Route: 065
  2. NOVOLOG [Suspect]
     Active Substance: INSULIN ASPART
     Indication: TYPE 1 DIABETES MELLITUS
     Dosage: SLIDING SCALE
     Route: 058
     Dates: start: 2016

REACTIONS (7)
  - Vomiting [Unknown]
  - Abdominal pain [Unknown]
  - Skin fissures [Unknown]
  - Nausea [Unknown]
  - Pain of skin [Unknown]
  - Spinal pain [Unknown]
  - Genital pain [Unknown]
